FAERS Safety Report 14560928 (Version 1)
Quarter: 2018Q1

REPORT INFORMATION
  Report Type: Spontaneous
  Country: IT (occurrence: IT)
  Receive Date: 20180222
  Receipt Date: 20180222
  Transmission Date: 20180509
  Serious: Yes (Hospitalization)
  Sender: FDA-Public Use
  Company Number: IT-SUN PHARMACEUTICAL INDUSTRIES LTD-2018RR-164069

PATIENT
  Age: 19 Year
  Sex: Female
  Weight: 63 kg

DRUGS (5)
  1. METFORMIN [Suspect]
     Active Substance: METFORMIN HYDROCHLORIDE
     Indication: INTENTIONAL SELF-INJURY
     Dosage: 850 MG IN TOTAL
     Route: 048
  2. EXPOSE [Suspect]
     Active Substance: EPERISONE HYDROCHLORIDE
     Indication: INTENTIONAL SELF-INJURY
     Dosage: 4 DF, IN TOTAL
  3. MONTELUKAST SODIUM. [Suspect]
     Active Substance: MONTELUKAST SODIUM
     Indication: INTENTIONAL SELF-INJURY
     Dosage: 4 DF, UNK
     Route: 048
  4. KETOTIFEN HYDROGEN FUMARATE [Suspect]
     Active Substance: KETOTIFEN FUMARATE
     Indication: INTENTIONAL SELF-INJURY
     Dosage: 4 DF IN TOTAL
     Route: 048
  5. TACHIPIRINA 1000 MG COMPRESSE [Suspect]
     Active Substance: ACETAMINOPHEN
     Indication: INTENTIONAL SELF-INJURY
     Dosage: 8 DF IN TOTAL
     Route: 048

REACTIONS (4)
  - Vomiting [Unknown]
  - Intentional self-injury [Unknown]
  - Drug abuse [Unknown]
  - Overdose [Unknown]

NARRATIVE: CASE EVENT DATE: 20170118
